FAERS Safety Report 5902031-9 (Version None)
Quarter: 2008Q3

REPORT INFORMATION
  Report Type: 
  Country: None (occurrence: None)
  Receive Date: 20080929
  Receipt Date: 20080919
  Transmission Date: 20090109
  Serious: Yes (Other)
  Sender: FDA-Public Use
  Company Number: US-SANOFI-SYNTHELABO-A03200803685

PATIENT
  Age: 70 Year
  Sex: Female

DRUGS (5)
  1. MUSCLE SPASM PILL [Concomitant]
     Indication: DRUG USE FOR UNKNOWN INDICATION
     Dosage: UNK
     Route: 065
  2. BLOOD PRESSURE MEDICATION [Concomitant]
     Indication: DRUG USE FOR UNKNOWN INDICATION
     Dosage: UNK
     Route: 065
  3. THYROID MEDICATION [Concomitant]
     Indication: DRUG USE FOR UNKNOWN INDICATION
     Dosage: UNK
     Route: 065
  4. PLAVIX [Suspect]
     Indication: ARTERIAL STENOSIS
     Route: 048
     Dates: start: 20080801, end: 20080801
  5. PLAVIX [Suspect]
     Route: 048
     Dates: start: 20080801

REACTIONS (5)
  - ACCIDENTAL OVERDOSE [None]
  - DROOLING [None]
  - DYSARTHRIA [None]
  - GAIT DISTURBANCE [None]
  - MONOPLEGIA [None]
